FAERS Safety Report 7800713-5 (Version None)
Quarter: 2011Q4

REPORT INFORMATION
  Report Type: 
  Country: None (occurrence: None)
  Receive Date: 20111006
  Receipt Date: 20110928
  Transmission Date: 20120403
  Serious: No
  Sender: FDA-Public Use
  Company Number: US-B.I. PHARMACEUTICALS,INC./RIDGEFIELD-2011-BP-23031BP

PATIENT
  Age: 68 Year
  Sex: Female

DRUGS (9)
  1. LEVOXYL [Concomitant]
     Indication: THYROIDECTOMY
     Dates: start: 19960101
  2. FENOFIBRATE [Concomitant]
     Indication: BLOOD CHOLESTEROL ABNORMAL
  3. SOTALOL HCL [Concomitant]
     Indication: ATRIAL FIBRILLATION
  4. BUSPAR [Concomitant]
     Indication: ANXIETY
  5. PRADAXA [Suspect]
     Indication: ATRIAL FIBRILLATION
     Dosage: 150 MG
     Route: 048
     Dates: start: 20110801
  6. ZANTAC [Concomitant]
  7. ASPIRIN [Concomitant]
     Indication: PROPHYLAXIS
     Dosage: 81 MG
     Route: 048
  8. TOPROL-XL [Concomitant]
     Indication: HYPERTENSION
  9. METFORMIN HYDROCHLORIDE [Concomitant]
     Indication: DIABETES MELLITUS

REACTIONS (3)
  - DIZZINESS [None]
  - ABDOMINAL DISCOMFORT [None]
  - CONSTIPATION [None]
